FAERS Safety Report 4407245-5 (Version None)
Quarter: 2004Q3

REPORT INFORMATION
  Report Type: 
  Country: None (occurrence: None)
  Receive Date: 20040721
  Receipt Date: 20040629
  Transmission Date: 20050211
  Serious: Yes (Death, Hospitalization, Other)
  Sender: FDA-Public Use
  Company Number: USA040771785

PATIENT
  Age: 83 Year
  Sex: Male

DRUGS (1)
  1. HUMULIN HUMAN INSULIN (RDNA) UNKNOWN FORMULATION (HUMULIN HUMAN INSULI [Suspect]
     Dates: end: 19940101

REACTIONS (7)
  - BLOOD GLUCOSE DECREASED [None]
  - CEREBROVASCULAR ACCIDENT [None]
  - LOSS OF CONSCIOUSNESS [None]
  - MYOCARDIAL INFARCTION [None]
  - RENAL FAILURE [None]
  - SLEEP DISORDER [None]
  - TRANSIENT ISCHAEMIC ATTACK [None]
